FAERS Safety Report 16661466 (Version 1)
Quarter: 2019Q3

REPORT INFORMATION
  Report Type: Spontaneous
  Country: US (occurrence: US)
  Receive Date: 20190802
  Receipt Date: 20190802
  Transmission Date: 20191004
  Serious: No
  Sender: FDA-Public Use
  Company Number: US-HORIZON-DUE-0413-2019

PATIENT
  Age: 60 Year
  Sex: Female

DRUGS (6)
  1. TREZIX [Concomitant]
     Active Substance: ACETAMINOPHEN\CAFFEINE\DIHYDROCODEINE BITARTRATE
  2. DUEXIS [Suspect]
     Active Substance: FAMOTIDINE\IBUPROFEN
     Indication: PLANTAR FASCIITIS
     Dosage: 1 TAB TID
     Dates: start: 20190709
  3. FLONASE [Concomitant]
     Active Substance: FLUTICASONE PROPIONATE
  4. SYNTHROID [Concomitant]
     Active Substance: LEVOTHYROXINE SODIUM
  5. EFFEXOR [Concomitant]
     Active Substance: VENLAFAXINE HYDROCHLORIDE
  6. CLARITIN [Concomitant]
     Active Substance: LORATADINE

REACTIONS (2)
  - Abdominal pain upper [Not Recovered/Not Resolved]
  - Off label use [Not Recovered/Not Resolved]

NARRATIVE: CASE EVENT DATE: 20190709
